FAERS Safety Report 25269309 (Version 1)
Quarter: 2025Q2

REPORT INFORMATION
  Report Type: Spontaneous
  Country: US (occurrence: None)
  Receive Date: 20250505
  Receipt Date: 20250505
  Transmission Date: 20250717
  Serious: Yes (Disabling)
  Sender: FDA-CTU
  Company Number: None

PATIENT
  Age: 37 Year
  Sex: Female
  Weight: 81.9 kg

DRUGS (10)
  1. RISPERIDONE [Suspect]
     Active Substance: RISPERIDONE
  2. ABILIFY [Suspect]
     Active Substance: ARIPIPRAZOLE
     Dosage: FREQUENCY : DAILY;?
  3. carbamazepine 500 mg/day (200 mg in morning, 300 mg at night) [Concomitant]
     Dosage: FREQUENCY : DAILY;?
  4. RISPERIDONE [Concomitant]
     Active Substance: RISPERIDONE
  5. ESCITALOPRAM [Concomitant]
     Active Substance: ESCITALOPRAM OXALATE
  6. B-complex supplement [Concomitant]
  7. folate supplement [Concomitant]
  8. Melatonin 3mg [Concomitant]
  9. MAGNESIUM GLYCINATE [Concomitant]
     Active Substance: MAGNESIUM GLYCINATE
  10. Pro-biotic [Concomitant]

REACTIONS (11)
  - Apathy [None]
  - Poor personal hygiene [None]
  - Weight increased [None]
  - Somnolence [None]
  - Hypersomnia [None]
  - Mobility decreased [None]
  - Self esteem decreased [None]
  - Psychiatric symptom [None]
  - Condition aggravated [None]
  - Impaired work ability [None]
  - Sexual dysfunction [None]
